FAERS Safety Report 13687947 (Version 1)
Quarter: 2017Q2

REPORT INFORMATION
  Report Type: Report from Study
  Country: JP (occurrence: JP)
  Receive Date: 20170626
  Receipt Date: 20170626
  Transmission Date: 20170830
  Serious: Yes (Death, Life-Threatening, Other)
  Sender: FDA-Public Use
  Company Number: JP-ROCHE-1920643

PATIENT
  Age: 54 Year
  Sex: Male

DRUGS (19)
  1. DEXART [Concomitant]
     Active Substance: DEXAMETHASONE SODIUM PHOSPHATE
     Route: 042
     Dates: start: 20160805, end: 20160805
  2. TACROLIMUS HYDRATE [Concomitant]
     Active Substance: TACROLIMUS
     Route: 048
     Dates: start: 20160814, end: 20160815
  3. TACROLIMUS HYDRATE [Concomitant]
     Active Substance: TACROLIMUS
     Route: 048
     Dates: start: 20160902, end: 20160908
  4. PIPERACILLIN AND TAZOBACTAM [Concomitant]
     Active Substance: PIPERACILLIN SODIUM\TAZOBACTAM SODIUM
  5. PREDNISOLONE. [Suspect]
     Active Substance: PREDNISOLONE
     Indication: PROPHYLAXIS AGAINST TRANSPLANT REJECTION
     Route: 048
     Dates: start: 20160808, end: 20160814
  6. PREDNISOLONE. [Suspect]
     Active Substance: PREDNISOLONE
     Route: 048
     Dates: start: 20160824, end: 20160830
  7. METHYLPREDNISOLONE. [Suspect]
     Active Substance: METHYLPREDNISOLONE
     Indication: PROPHYLAXIS AGAINST TRANSPLANT REJECTION
     Route: 048
     Dates: start: 20160815, end: 20160819
  8. TACROLIMUS HYDRATE [Concomitant]
     Active Substance: TACROLIMUS
     Route: 042
     Dates: start: 20160916, end: 20160922
  9. PREDNISOLONE. [Suspect]
     Active Substance: PREDNISOLONE
     Route: 048
     Dates: start: 20160905, end: 20160910
  10. METHYLPREDNISOLONE. [Suspect]
     Active Substance: METHYLPREDNISOLONE
     Route: 048
     Dates: start: 20160831, end: 20160904
  11. TACROLIMUS HYDRATE [Concomitant]
     Active Substance: TACROLIMUS
     Route: 048
     Dates: start: 20160816, end: 20160819
  12. TACROLIMUS HYDRATE [Concomitant]
     Active Substance: TACROLIMUS
     Route: 048
     Dates: start: 20160826, end: 20160901
  13. TACROLIMUS HYDRATE [Concomitant]
     Active Substance: TACROLIMUS
     Route: 042
     Dates: start: 20160909, end: 20160915
  14. RITUXIMAB [Suspect]
     Active Substance: RITUXIMAB
     Indication: PROPHYLAXIS AGAINST TRANSPLANT REJECTION
     Route: 042
     Dates: start: 20160805, end: 20160805
  15. MYCOPHENOLATE MOFETIL. [Suspect]
     Active Substance: MYCOPHENOLATE MOFETIL
     Route: 048
     Dates: start: 20160816, end: 20160824
  16. TACROLIMUS HYDRATE [Concomitant]
     Active Substance: TACROLIMUS
     Route: 048
     Dates: start: 20160820, end: 20160825
  17. MYCOPHENOLATE MOFETIL. [Suspect]
     Active Substance: MYCOPHENOLATE MOFETIL
     Indication: PROPHYLAXIS AGAINST TRANSPLANT REJECTION
     Route: 048
     Dates: start: 20160808, end: 20160814
  18. METHYLPREDNISOLONE. [Suspect]
     Active Substance: METHYLPREDNISOLONE
     Route: 048
     Dates: start: 20160820, end: 20160822
  19. POLARAMINE [Concomitant]
     Active Substance: DEXCHLORPHENIRAMINE MALEATE
     Route: 042
     Dates: start: 20160805, end: 20160805

REACTIONS (7)
  - Intestinal perforation [Not Recovered/Not Resolved]
  - Pseudomonal sepsis [Unknown]
  - Pancytopenia [Unknown]
  - Shock [Unknown]
  - Cytomegalovirus infection [Fatal]
  - Angiopathy [Unknown]
  - Sepsis [Unknown]

NARRATIVE: CASE EVENT DATE: 20160815
